FAERS Safety Report 7797613-6 (Version None)
Quarter: 2011Q3

REPORT INFORMATION
  Report Type: 
  Country: None (occurrence: None)
  Receive Date: 20110926
  Receipt Date: 20110913
  Transmission Date: 20111222
  Serious: Yes (Other)
  Sender: FDA-Public Use
  Company Number: 2011029774

PATIENT
  Age: 24 Month
  Sex: Male
  Weight: 14.5151 kg

DRUGS (4)
  1. PHENOBARB (PHENOBARBITAL SODIUM) [Suspect]
  2. PREVACID [Concomitant]
  3. HIZENTRA [Suspect]
     Indication: HYPOGLOBULINAEMIA
     Dosage: (2 G 1X/WEEK, (10 ML) VIA MULTIPLE SITES SUBCUTANEOUS), (SUBCUTANEOUS)
     Route: 058
     Dates: start: 20110428
  4. FLOVENT [Concomitant]

REACTIONS (4)
  - VOMITING [None]
  - DECREASED APPETITE [None]
  - CONVULSION [None]
  - CONDITION AGGRAVATED [None]
